FAERS Safety Report 9283940 (Version 1)
Quarter: 2013Q2

REPORT INFORMATION
  Report Type: Spontaneous
  Country: US (occurrence: US)
  Receive Date: 20130510
  Receipt Date: 20130510
  Transmission Date: 20140414
  Serious: No
  Sender: FDA-Public Use
  Company Number: US-COVIDIEN/TYCO HEALTHCARE/MALLINCKRODT-T201301880

PATIENT
  Sex: Male
  Weight: 70.3 kg

DRUGS (3)
  1. FENTANYL TRANSDERMAL SYSTEM [Suspect]
     Indication: CANCER PAIN
     Dosage: 50 MCG/HR, Q 3 DAYS
     Route: 062
     Dates: start: 20130424, end: 20130507
  2. TPN                                /00897001/ [Concomitant]
     Indication: MEDICAL DIET
     Dosage: UNK
  3. MORPHINE [Concomitant]
     Indication: CANCER PAIN
     Dosage: 10 MG, Q 4 HRS
     Route: 048
     Dates: end: 20130504

REACTIONS (5)
  - Thirst [Not Recovered/Not Resolved]
  - Asthenia [Not Recovered/Not Resolved]
  - Nausea [Not Recovered/Not Resolved]
  - Fatigue [Not Recovered/Not Resolved]
  - Feeling of body temperature change [Not Recovered/Not Resolved]
